FAERS Safety Report 8046673-6 (Version None)
Quarter: 2012Q1

REPORT INFORMATION
  Report Type: 
  Country: None (occurrence: None)
  Receive Date: 20120115
  Receipt Date: 20120103
  Transmission Date: 20120608
  Serious: Yes (Other)
  Sender: FDA-Public Use
  Company Number: US-BAYER-2012-000866

PATIENT

DRUGS (1)
  1. ALKA-SELTZER PLUS COLD SPARKLING ORIGINAL [Suspect]
     Route: 048

REACTIONS (6)
  - SLEEP DISORDER [None]
  - DRUG INEFFECTIVE [None]
  - CHOKING [None]
  - COUGH [None]
  - VOMITING [None]
  - MALAISE [None]
